FAERS Safety Report 20849833 (Version 3)
Quarter: 2022Q2

REPORT INFORMATION
  Report Type: Report from Study
  Country: GR (occurrence: GR)
  Receive Date: 20220519
  Receipt Date: 20220526
  Transmission Date: 20220721
  Serious: Yes (Hospitalization, Other)
  Sender: FDA-Public Use
  Company Number: GR-ABBVIE-22K-066-4394571-00

PATIENT
  Sex: Female
  Weight: 95 kg

DRUGS (2)
  1. CARBIDOPA\LEVODOPA [Suspect]
     Active Substance: CARBIDOPA\LEVODOPA
     Indication: Parkinson^s disease
     Route: 050
     Dates: start: 20220406, end: 20220511
  2. CARBIDOPA\LEVODOPA [Suspect]
     Active Substance: CARBIDOPA\LEVODOPA
     Dosage: MORNING DOSE: 11.0ML; CONTINUOUS RATE: 3.0ML/H; EXTRA DOSE 1.5ML
     Route: 050
     Dates: start: 20220519

REACTIONS (8)
  - Atrial fibrillation [Recovered/Resolved]
  - Abdominal injury [Recovering/Resolving]
  - Abdominal wall haemorrhage [Recovered/Resolved]
  - Gastrointestinal disorder [Unknown]
  - C-reactive protein increased [Recovered/Resolved]
  - Diarrhoea [Not Recovered/Not Resolved]
  - Flatulence [Recovering/Resolving]
  - Abdominal pain [Not Recovered/Not Resolved]

NARRATIVE: CASE EVENT DATE: 20220101
